FAERS Safety Report 25578852 (Version 2)
Quarter: 2025Q3

REPORT INFORMATION
  Report Type: Spontaneous
  Country: US (occurrence: US)
  Receive Date: 20250718
  Receipt Date: 20250911
  Transmission Date: 20251020
  Serious: Yes (Hospitalization, Other)
  Sender: AVEO PHARMACEUTICALS
  Company Number: US-AVEO PHARMACEUTICALS, INC.-2025-AVEO-US000540

PATIENT
  Age: 52 Year
  Sex: Male

DRUGS (1)
  1. FOTIVDA [Suspect]
     Active Substance: TIVOZANIB HYDROCHLORIDE
     Indication: Renal cell carcinoma

REACTIONS (4)
  - Immune thrombocytopenia [Recovered/Resolved]
  - Pulmonary embolism [Unknown]
  - Pneumothorax [Unknown]
  - Pulmonary mass [Unknown]
